FAERS Safety Report 14139281 (Version 5)
Quarter: 2018Q2

REPORT INFORMATION
  Report Type: Report from Study
  Country: None (occurrence: US)
  Receive Date: 20171028
  Receipt Date: 20180623
  Transmission Date: 20180711
  Serious: No
  Sender: FDA-Public Use
  Company Number: US-ABBVIE-17K-163-2139465-00

PATIENT
  Age: 52 Year
  Sex: Female

DRUGS (3)
  1. HUMIRA [Suspect]
     Active Substance: ADALIMUMAB
     Indication: RHEUMATOID ARTHRITIS
     Route: 058
     Dates: start: 201402, end: 201705
  2. HUMIRA [Suspect]
     Active Substance: ADALIMUMAB
     Indication: PSORIATIC ARTHROPATHY
     Route: 058
     Dates: start: 2017
  3. PREDNISONE. [Suspect]
     Active Substance: PREDNISONE
     Indication: PRODUCT USED FOR UNKNOWN INDICATION
     Route: 065

REACTIONS (18)
  - Psoriatic arthropathy [Unknown]
  - Rheumatoid arthritis [Unknown]
  - Prescription drug used without a prescription [Unknown]
  - Psoriasis [Unknown]
  - Swelling face [Unknown]
  - Stress [Unknown]
  - Ligament sprain [Unknown]
  - Respiratory tract congestion [Unknown]
  - Scratch [Unknown]
  - Psoriasis [Recovering/Resolving]
  - Nasopharyngitis [Unknown]
  - Rash papular [Unknown]
  - Plantar fasciitis [Unknown]
  - Ear infection [Unknown]
  - Skin lesion [Unknown]
  - Fall [Unknown]
  - Stress [Unknown]
  - Fungal infection [Recovered/Resolved]

NARRATIVE: CASE EVENT DATE: 2017
